FAERS Safety Report 5993979-8 (Version None)
Quarter: 2008Q4

REPORT INFORMATION
  Report Type: 
  Country: None (occurrence: None)
  Receive Date: 20081212
  Receipt Date: 20081201
  Transmission Date: 20090506
  Serious: Yes (Other)
  Sender: FDA-Public Use
  Company Number: JP-PFIZER INC-2008100748

PATIENT

DRUGS (8)
  1. ZITHROMAX [Suspect]
     Indication: BRONCHITIS
     Dosage: UNK
     Route: 048
     Dates: start: 20081029, end: 20081029
  2. DALACIN [Suspect]
     Indication: BRONCHITIS
     Dosage: UNK
     Route: 042
     Dates: start: 20081029, end: 20081029
  3. MUCODYNE [Concomitant]
     Dosage: UNK
     Route: 048
     Dates: start: 20081029, end: 20081029
  4. MEPTIN [Concomitant]
     Route: 048
     Dates: start: 20081029, end: 20081029
  5. AZELASTINE [Concomitant]
     Route: 048
     Dates: start: 20081029, end: 20081029
  6. SENEGA [Concomitant]
     Route: 048
     Dates: start: 20081029, end: 20081029
  7. BROCIN [Concomitant]
     Route: 048
     Dates: start: 20081029, end: 20081029
  8. DIHYDROCODEINE PHOSPHATE [Concomitant]

REACTIONS (3)
  - MALAISE [None]
  - OEDEMA [None]
  - RASH [None]
